FAERS Safety Report 6156234-1 (Version None)
Quarter: 2009Q2

REPORT INFORMATION
  Report Type: 
  Country: None (occurrence: None)
  Receive Date: 20090415
  Receipt Date: 20090212
  Transmission Date: 20091009
  Serious: Yes (Death, Life-Threatening, Other)
  Sender: FDA-Public Use
  Company Number: JP-WYE-H07279708

PATIENT
  Sex: Male
  Weight: 62 kg

DRUGS (53)
  1. ANCARON [Suspect]
     Indication: VENTRICULAR TACHYCARDIA
     Route: 042
     Dates: start: 20080719, end: 20080719
  2. ANCARON [Suspect]
     Route: 042
     Dates: start: 20080719, end: 20080720
  3. ANCARON [Suspect]
     Route: 042
     Dates: start: 20080725, end: 20080725
  4. ANCARON [Suspect]
     Route: 042
     Dates: start: 20080725, end: 20080726
  5. LIDOCAINE HCL IN PLASTIC CONTAINER [Concomitant]
     Route: 042
     Dates: start: 20080719, end: 20080719
  6. ASPIRIN [Concomitant]
     Route: 048
     Dates: start: 20080719, end: 20080719
  7. PANALDINE [Concomitant]
     Dosage: DOSE UNKNOWN
     Route: 048
     Dates: start: 20080719, end: 20080730
  8. TAKEPRON [Concomitant]
     Indication: GASTRIC ULCER
     Dosage: 15 MG, FREQUENCY UNSPECIFIED
     Route: 048
     Dates: start: 20080719, end: 20080730
  9. ARTIST [Concomitant]
     Dosage: 2.5 MG, FREQUENCY UNSPECIFIED
     Route: 065
     Dates: start: 20080719, end: 20080730
  10. EPADEL [Concomitant]
     Route: 048
     Dates: start: 20080709, end: 20080730
  11. MAGNESIUM OXIDE [Concomitant]
     Route: 048
     Dates: start: 20080719, end: 20080730
  12. SIGMART [Concomitant]
     Indication: VENTRICULAR TACHYCARDIA
     Route: 048
     Dates: start: 20080719, end: 20080719
  13. SIGMART [Concomitant]
     Route: 042
     Dates: start: 20080718, end: 20080720
  14. SIGMART [Concomitant]
     Route: 042
     Dates: start: 20080723, end: 20080723
  15. SIGMART [Concomitant]
     Route: 042
     Dates: start: 20080724, end: 20080730
  16. DIOVAN [Concomitant]
     Dosage: 20 MG, FREQUENCY UNSPECIFIED
     Route: 048
     Dates: start: 20080719
  17. LAXOBERON [Concomitant]
     Route: 048
     Dates: start: 20080721, end: 20080721
  18. LAXOBERON [Concomitant]
     Route: 048
     Dates: start: 20080725, end: 20080725
  19. LAXOBERON [Concomitant]
     Dosage: 30 GTT, FREQUENCY UNSPECIFIED
     Route: 048
     Dates: start: 20080726, end: 20080728
  20. LAXOBERON [Concomitant]
     Route: 048
     Dates: start: 20080728, end: 20080728
  21. BACTROBAN [Concomitant]
     Indication: INFECTION PROPHYLAXIS
     Dosage: ^ADEQUATE DOSE, 1 TO 2 TIMES^
     Route: 048
     Dates: start: 20080722, end: 20080722
  22. NIFEKALANT HYDROCHLORIDE [Concomitant]
     Indication: VENTRICULAR TACHYCARDIA
     Route: 042
     Dates: start: 20080720, end: 20080722
  23. HICALIQ [Concomitant]
     Indication: PARENTERAL NUTRITION
     Route: 042
     Dates: start: 20080720, end: 20080722
  24. HICALIQ [Concomitant]
     Route: 042
     Dates: start: 20080722, end: 20080730
  25. DORMICUM ^ROCHE^ [Concomitant]
     Dosage: 100 TO 200 MG/HOUR
     Route: 042
     Dates: start: 20080721, end: 20080730
  26. AMINO ACIDS NOS [Concomitant]
     Indication: PARENTERAL NUTRITION
     Route: 042
     Dates: start: 20080720, end: 20080722
  27. AMINO ACIDS NOS [Concomitant]
     Route: 042
     Dates: start: 20080722, end: 20080730
  28. PANTOL [Concomitant]
     Indication: PARENTERAL NUTRITION
     Route: 042
     Dates: start: 20080720, end: 20080722
  29. PANTOL [Concomitant]
     Route: 042
     Dates: start: 20080722, end: 20080730
  30. DOPAMINE HCL [Concomitant]
     Indication: VENTRICULAR TACHYCARDIA
     Route: 042
     Dates: start: 20080719, end: 20080720
  31. DOPAMINE HCL [Concomitant]
     Dosage: 16 TO 46 MG/HOUR
     Route: 042
     Dates: start: 20080724, end: 20080724
  32. HEPARIN [Concomitant]
     Dosage: 20 TO 60 U/HOUR (WITH 10000 U)
     Route: 042
     Dates: start: 20080719, end: 20080729
  33. HEPARIN [Concomitant]
     Route: 042
     Dates: start: 20080719, end: 20080730
  34. HEPARIN [Concomitant]
     Dosage: 20 ML, FREQUENCY UNSPECIFIED
     Route: 042
     Dates: start: 20080726, end: 20080730
  35. HUMALIN [Concomitant]
     Dosage: 20-60 U/HR (WITH 10000 U)
     Route: 042
     Dates: start: 20080719, end: 20080729
  36. HUMALIN [Concomitant]
     Route: 042
     Dates: start: 20080719, end: 20080730
  37. HUMALIN [Concomitant]
     Dosage: 20 ML, FREQUENCY UNSPECIFIED
     Route: 042
     Dates: start: 20080726, end: 20080730
  38. INTRAFAT [Concomitant]
     Route: 042
     Dates: start: 20080725, end: 20080728
  39. INTRAFAT [Concomitant]
     Route: 042
     Dates: start: 20080726, end: 20080726
  40. HANP [Concomitant]
     Indication: VENTRICULAR TACHYCARDIA
     Dosage: 200 TO 400 MCG/HOUR
     Route: 042
     Dates: start: 20080719, end: 20080720
  41. HANP [Concomitant]
     Dosage: ^160 MG/HOUR^
     Route: 042
     Dates: start: 20080719, end: 20080730
  42. DEXTRAN 40 [Concomitant]
     Route: 042
     Dates: start: 20080720, end: 20080722
  43. FLUCONAZOLE [Concomitant]
     Route: 042
     Dates: start: 20080719, end: 20080721
  44. DOBUTAMINE HCL [Concomitant]
     Indication: VENTRICULAR TACHYCARDIA
     Dosage: 12 TO 16 MG/HOUR
     Route: 042
     Dates: start: 20080719, end: 20080719
  45. DOBUTAMINE HCL [Concomitant]
     Route: 042
     Dates: start: 20080719, end: 20080729
  46. DOBUTAMINE HCL [Concomitant]
     Dosage: 40 TO 48 MG/HOUR
     Route: 042
     Dates: start: 20080723, end: 20080724
  47. MILRILA [Concomitant]
     Dosage: 0.8 TO 1 MG/HOUR
     Route: 042
     Dates: start: 20080719, end: 20080720
  48. CEFAZOLIN AND DEXTROSE [Concomitant]
     Indication: INFECTION PROPHYLAXIS
     Dosage: 1 G, FREQUENCY UNSPECIFIED
     Route: 042
     Dates: start: 20080719, end: 20080719
  49. SULBACTAM [Concomitant]
     Route: 042
     Dates: start: 20080719, end: 20080730
  50. SOHVITA [Concomitant]
     Indication: PARENTERAL NUTRITION
     Dosage: ^1 A EACH^, FREQUENCY UNSPECIFIED
     Route: 042
     Dates: start: 20080720
  51. ALBUMINAR [Concomitant]
     Dosage: 50 ML, FREQUENCY UNSPECIFIED
     Route: 042
     Dates: start: 20080721, end: 20080724
  52. SOTALOL HCL [Concomitant]
     Dosage: 40 MG, FREQUENCY UNSPECIFIED
     Route: 048
     Dates: start: 20080725, end: 20080730
  53. SODIUM CHLORIDE [Concomitant]
     Route: 042
     Dates: start: 20080719, end: 20080719

REACTIONS (6)
  - ANAEMIA [None]
  - ATRIAL FIBRILLATION [None]
  - BRADYCARDIA [None]
  - CONDITION AGGRAVATED [None]
  - PNEUMONIA [None]
  - VENTRICULAR TACHYCARDIA [None]
